FAERS Safety Report 9083551 (Version 1)
Quarter: 2013Q1

REPORT INFORMATION
  Report Type: Report from Study
  Country: US (occurrence: US)
  Receive Date: 20130131
  Receipt Date: 20130131
  Transmission Date: 20140127
  Serious: No
  Sender: FDA-Public Use
  Company Number: US-ABBOTT-12P-163-0986825-00

PATIENT
  Age: 57 Year
  Sex: Female

DRUGS (2)
  1. HUMIRA [Suspect]
     Indication: SARCOIDOSIS
     Dates: start: 201206
  2. HUMIRA [Suspect]
     Indication: PSORIASIS

REACTIONS (1)
  - Bronchitis [Unknown]
